FAERS Safety Report 4806593-4 (Version None)
Quarter: 2005Q4

REPORT INFORMATION
  Report Type: 
  Country: None (occurrence: None)
  Receive Date: 20051021
  Receipt Date: 20051010
  Transmission Date: 20060501
  Serious: Yes (Hospitalization)
  Sender: FDA-Public Use
  Company Number: 200513301FR

PATIENT
  Age: 59 Year
  Sex: Female
  Weight: 78 kg

DRUGS (8)
  1. TRAMADOL HCL [Suspect]
     Indication: SCIATICA
     Route: 048
     Dates: end: 20050420
  2. DAONIL [Suspect]
     Indication: DIABETES MELLITUS
     Route: 048
  3. ALDACTAZINE [Concomitant]
     Route: 048
  4. TRIATEC [Concomitant]
     Route: 048
  5. KARDEGIC [Concomitant]
     Route: 048
  6. METFORMIN HCL [Concomitant]
     Route: 048
  7. CARDENSIEL [Concomitant]
     Route: 048
  8. LANTUS [Concomitant]
     Route: 058

REACTIONS (6)
  - ANOREXIA [None]
  - CONDITION AGGRAVATED [None]
  - HYPOGLYCAEMIA [None]
  - NAUSEA [None]
  - SCIATICA [None]
  - WEIGHT DECREASED [None]
